FAERS Safety Report 15245659 (Version 2)
Quarter: 2018Q3

REPORT INFORMATION
  Report Type: Spontaneous
  Country: IT (occurrence: IT)
  Receive Date: 20180806
  Receipt Date: 20180902
  Transmission Date: 20181010
  Serious: Yes (Hospitalization)
  Sender: FDA-Public Use
  Company Number: PHHY2018IT062990

PATIENT
  Age: 47 Year
  Sex: Female

DRUGS (2)
  1. SEROQUEL [Suspect]
     Active Substance: QUETIAPINE FUMARATE
     Indication: DRUG ABUSE
     Dosage: 60 DF(?G/L), (TOTAL)
     Route: 048
     Dates: start: 20180610, end: 20180610
  2. GABAPENTIN. [Suspect]
     Active Substance: GABAPENTIN
     Indication: DRUG ABUSE
     Dosage: UNK
     Route: 065

REACTIONS (4)
  - Sopor [Recovering/Resolving]
  - Slow speech [Recovering/Resolving]
  - Intentional self-injury [Recovering/Resolving]
  - Drug abuse [Recovering/Resolving]

NARRATIVE: CASE EVENT DATE: 20180610
